FAERS Safety Report 9536457 (Version 1)
Quarter: 2013Q3

REPORT INFORMATION
  Report Type: Spontaneous
  Country: US (occurrence: None)
  Receive Date: 20130917
  Receipt Date: 20130917
  Transmission Date: 20140515
  Serious: Yes (Disabling, Other)
  Sender: FDA-Public Use
  Company Number: None

PATIENT
  Age: 6 Year
  Sex: Male
  Weight: 32.66 kg

DRUGS (2)
  1. SINGULAIR [Suspect]
     Indication: MULTIPLE ALLERGIES
     Dosage: 1 DOSE ONCE DAILY TAKEN BY MOUTH
     Route: 048
     Dates: start: 20110304, end: 20130914
  2. SINGULAIR [Suspect]
     Indication: COUGH
     Dosage: 1 DOSE ONCE DAILY TAKEN BY MOUTH
     Route: 048
     Dates: start: 20110304, end: 20130914

REACTIONS (6)
  - Tic [None]
  - Nightmare [None]
  - Hallucination [None]
  - Anxiety [None]
  - Emotional disorder [None]
  - Excessive eye blinking [None]
